FAERS Safety Report 6121060-6 (Version None)
Quarter: 2009Q1

REPORT INFORMATION
  Report Type: 
  Country: None (occurrence: None)
  Receive Date: 20090312
  Receipt Date: 20090312
  Transmission Date: 20090719
  Serious: Yes (Other)
  Sender: FDA-Public Use
  Company Number: None

PATIENT
  Age: 69 Year
  Sex: Female
  Weight: 52.1637 kg

DRUGS (2)
  1. VIGAMOX [Suspect]
     Indication: CATARACT OPERATION
     Dosage: 1 DROP FOUR TIMES A DAY OPHTHALMIC
     Route: 047
     Dates: start: 20090218, end: 20090302
  2. NEVANAC [Concomitant]

REACTIONS (13)
  - ANXIETY [None]
  - ARTHRALGIA [None]
  - BALANCE DISORDER [None]
  - DIZZINESS [None]
  - HEADACHE [None]
  - HEART RATE INCREASED [None]
  - INSOMNIA [None]
  - MYALGIA [None]
  - NAUSEA [None]
  - NEUROPATHY PERIPHERAL [None]
  - RASH [None]
  - TENDON PAIN [None]
  - TINNITUS [None]
